FAERS Safety Report 4805475-1 (Version None)
Quarter: 2005Q4

REPORT INFORMATION
  Report Type: 
  Country: None (occurrence: None)
  Receive Date: 20051018
  Receipt Date: 20051003
  Transmission Date: 20060501
  Serious: Yes (Congenital Anomaly)
  Sender: FDA-Public Use
  Company Number: FR-2005-020659

PATIENT
  Age: 3 Month
  Sex: Male

DRUGS (1)
  1. DROSPIRENONE + ETHINYL ESTRADIOL [Suspect]
     Indication: DRUG EXPOSURE DURING PREGNANCY
     Dosage: 1 TAB(S), 21D/28D, TRANSPLACENTAL
     Route: 064
     Dates: start: 20040927, end: 20041011

REACTIONS (3)
  - CONGENITAL ANOMALY [None]
  - DRUG EXPOSURE DURING PREGNANCY [None]
  - PYLORIC STENOSIS [None]
